FAERS Safety Report 5120459-4 (Version None)
Quarter: 2006Q4

REPORT INFORMATION
  Report Type: 
  Country: None (occurrence: None)
  Receive Date: 20061004
  Receipt Date: 20060925
  Transmission Date: 20070319
  Serious: Yes (Hospitalization)
  Sender: FDA-Public Use
  Company Number: 2006CG01561

PATIENT
  Age: 72 Year
  Sex: Male

DRUGS (9)
  1. OMEPRAZOLE [Suspect]
     Indication: PROPHYLAXIS
     Route: 048
     Dates: start: 20060128, end: 20060524
  2. CORTANCYL [Suspect]
     Indication: MALIGNANT LYMPHOID NEOPLASM
     Route: 048
     Dates: start: 20060128
  3. CORTANCYL [Suspect]
     Route: 048
     Dates: start: 20060101, end: 20060504
  4. ZELITREX [Suspect]
     Indication: PROPHYLAXIS
     Route: 048
     Dates: start: 20060128, end: 20060524
  5. VFEND [Suspect]
     Indication: BRONCHOPULMONARY ASPERGILLOSIS
     Route: 048
     Dates: start: 20060128, end: 20060524
  6. LOZOL [Concomitant]
  7. NISIS [Concomitant]
  8. ASPIRIN [Concomitant]
  9. PENTACARINAT [Concomitant]
     Indication: ANTIBIOTIC PROPHYLAXIS
     Route: 055

REACTIONS (4)
  - GAIT DISTURBANCE [None]
  - PARAESTHESIA [None]
  - PERIPHERAL MOTOR NEUROPATHY [None]
  - PERIPHERAL SENSORY NEUROPATHY [None]
